FAERS Safety Report 5670938-6 (Version None)
Quarter: 2008Q1

REPORT INFORMATION
  Report Type: 
  Country: None (occurrence: None)
  Receive Date: 20080317
  Receipt Date: 20080317
  Transmission Date: 20080703
  Serious: Yes (Other)
  Sender: FDA-Public Use
  Company Number: None

PATIENT
  Age: 39 Year
  Sex: Female
  Weight: 58.0604 kg

DRUGS (4)
  1. BYSTOLIC [Suspect]
     Indication: HYPERTENSION
     Dosage: BYSTOLIC 5 MG ONE A DAY PO
     Route: 048
     Dates: start: 20080311, end: 20080312
  2. LOTREL [Concomitant]
  3. AMBIEN [Concomitant]
  4. TOPROL-XL [Concomitant]

REACTIONS (4)
  - NAUSEA [None]
  - UPPER RESPIRATORY TRACT INFECTION [None]
  - VERTIGO [None]
  - VOMITING [None]
